FAERS Safety Report 19734953 (Version 2)
Quarter: 2021Q3

REPORT INFORMATION
  Report Type: Other
  Country: GB (occurrence: GB)
  Receive Date: 20210823
  Receipt Date: 20210831
  Transmission Date: 20211014
  Serious: Yes (Hospitalization)
  Sender: FDA-Public Use
  Company Number: GB-ROCHE-2891095

PATIENT
  Age: 60 Year
  Sex: Female
  Weight: 70.7 kg

DRUGS (19)
  1. ONDANSETRON [Concomitant]
     Active Substance: ONDANSETRON
     Dates: start: 20210708, end: 20210712
  2. DEXAMETHASONE. [Concomitant]
     Active Substance: DEXAMETHASONE
     Dates: start: 20210707, end: 20210707
  3. FILGRASTIM [Concomitant]
     Active Substance: FILGRASTIM
     Dates: start: 20210708, end: 20210712
  4. ATEZOLIZUMAB. [Suspect]
     Active Substance: ATEZOLIZUMAB
     Indication: SMALL CELL LUNG CANCER EXTENSIVE STAGE
     Route: 042
     Dates: start: 20210707
  5. ETOPOSIDE. [Suspect]
     Active Substance: ETOPOSIDE
     Indication: SMALL CELL LUNG CANCER EXTENSIVE STAGE
     Route: 065
     Dates: start: 20210707
  6. CODEINE [Concomitant]
     Active Substance: CODEINE
     Dosage: YES
  7. IBUPROFEN. [Concomitant]
     Active Substance: IBUPROFEN
     Dosage: YES
  8. PARACETAMOL [Concomitant]
     Active Substance: ACETAMINOPHEN
  9. DEXAMETHASONE. [Concomitant]
     Active Substance: DEXAMETHASONE
     Dates: start: 20210708, end: 20210709
  10. ONDANSETRON [Concomitant]
     Active Substance: ONDANSETRON
     Dates: start: 20210707, end: 20210707
  11. ONDANSETRON [Concomitant]
     Active Substance: ONDANSETRON
     Dates: start: 20210616, end: 20210616
  12. METOCLOPRAMIDE. [Concomitant]
     Active Substance: METOCLOPRAMIDE
     Dates: start: 20210708, end: 20210712
  13. ETOPOSIDE. [Suspect]
     Active Substance: ETOPOSIDE
     Route: 065
     Dates: start: 20210708, end: 20210709
  14. ONDANSETRON [Concomitant]
     Active Substance: ONDANSETRON
     Dosage: YES
     Dates: start: 20210818, end: 20210818
  15. DEXAMETHASONE. [Concomitant]
     Active Substance: DEXAMETHASONE
     Dates: start: 20210818, end: 20210818
  16. LEVOFLOXACIN. [Concomitant]
     Active Substance: LEVOFLOXACIN
     Dates: start: 20210715, end: 20210720
  17. CARBOPLATIN. [Suspect]
     Active Substance: CARBOPLATIN
     Indication: SMALL CELL LUNG CANCER EXTENSIVE STAGE
     Route: 065
     Dates: start: 20210707
  18. DEXAMETHASONE. [Concomitant]
     Active Substance: DEXAMETHASONE
     Dates: start: 20210616, end: 20210616
  19. ETOPOSIDE. [Suspect]
     Active Substance: ETOPOSIDE
     Route: 048
     Dates: start: 20210729

REACTIONS (6)
  - Dry skin [Not Recovered/Not Resolved]
  - Neutropenic sepsis [Recovered/Resolved]
  - Mucosal inflammation [Not Recovered/Not Resolved]
  - Cough [Not Recovered/Not Resolved]
  - Palmar-plantar erythrodysaesthesia syndrome [Not Recovered/Not Resolved]
  - Alopecia [Not Recovered/Not Resolved]
